FAERS Safety Report 7282505-1 (Version None)
Quarter: 2011Q1

REPORT INFORMATION
  Report Type: 
  Country: None (occurrence: None)
  Receive Date: 20110128
  Receipt Date: 20110114
  Transmission Date: 20110831
  Serious: Yes (Hospitalization, Other)
  Sender: FDA-Public Use
  Company Number: DSA_44446_2010

PATIENT
  Age: 30 Year
  Sex: Female

DRUGS (3)
  1. DILTIAZEM HYDROCHLORIDE [Suspect]
     Indication: INTENTIONAL OVERDOSE
     Dosage: (NOT THE PRESCRIBED AMOUNT)
  2. AMIODARONE HYDROCHLORIDE [Suspect]
     Indication: INTENTIONAL OVERDOSE
     Dosage: (NOT THE PRESCRIBED AMOUNT)
  3. METOPROLOL [Suspect]
     Indication: INTENTIONAL OVERDOSE
     Dosage: (NOT THE PRESCRIBED AMOUNT)

REACTIONS (7)
  - ANURIA [None]
  - CARDIOGENIC SHOCK [None]
  - ABDOMINAL PAIN [None]
  - MITRAL VALVE INCOMPETENCE [None]
  - MULTIPLE DRUG OVERDOSE [None]
  - EJECTION FRACTION DECREASED [None]
  - CONFUSIONAL STATE [None]
